FAERS Safety Report 6591955-8 (Version None)
Quarter: 2010Q1

REPORT INFORMATION
  Report Type: 
  Country: None (occurrence: None)
  Receive Date: 20100221
  Receipt Date: 20090817
  Transmission Date: 20100710
  Serious: No
  Sender: FDA-Public Use
  Company Number: US-ALLERGAN-0911442US

PATIENT
  Age: 65 Year
  Sex: Male

DRUGS (2)
  1. BOTOX [Suspect]
     Indication: SPASMODIC DYSPHONIA
     Dosage: UNK
     Route: 030
     Dates: start: 20090601, end: 20090601
  2. BOTOX [Suspect]
     Dosage: UNK
     Route: 030
     Dates: start: 20090804, end: 20090804

REACTIONS (1)
  - DRUG INEFFECTIVE [None]
